FAERS Safety Report 13287595 (Version 3)
Quarter: 2017Q1

REPORT INFORMATION
  Report Type: Report from Study
  Country: CO (occurrence: CO)
  Receive Date: 20170302
  Receipt Date: 20170322
  Transmission Date: 20170428
  Serious: Yes (Hospitalization)
  Sender: FDA-Public Use
  Company Number: PHHY2017CO029980

PATIENT
  Age: 29 Year
  Sex: Male
  Weight: 58 kg

DRUGS (1)
  1. TASIGNA [Suspect]
     Active Substance: NILOTINIB
     Indication: CHRONIC MYELOID LEUKAEMIA
     Dosage: 200 MG, QID
     Route: 048
     Dates: start: 20170213, end: 20170310

REACTIONS (13)
  - Inappropriate schedule of drug administration [Unknown]
  - Feeling of despair [Unknown]
  - Drug ineffective [Unknown]
  - Abdominal pain [Unknown]
  - Oxygen saturation decreased [Unknown]
  - Spinal pain [Unknown]
  - Pyrexia [Unknown]
  - Abdominal pain upper [Unknown]
  - Chronic myeloid leukaemia [Unknown]
  - Malignant neoplasm progression [Unknown]
  - Swelling face [Unknown]
  - Peripheral swelling [Unknown]
  - Chronic myeloid leukaemia recurrent [Unknown]

NARRATIVE: CASE EVENT DATE: 20170213
